FAERS Safety Report 10737686 (Version 1)
Quarter: 2015Q1

REPORT INFORMATION
  Report Type: Spontaneous
  Country: IN (occurrence: None)
  Receive Date: 20150122
  Receipt Date: 20150122
  Transmission Date: 20150721
  Serious: Yes (Other)
  Sender: FDA-Public Use
  Company Number: ANTARES-LIT-2015-000006

PATIENT
  Age: 25 Year
  Sex: Female

DRUGS (1)
  1. METHOTREXATE [Suspect]
     Active Substance: METHOTREXATE
     Indication: EXTRAOCULAR MUSCLE DISORDER

REACTIONS (3)
  - Drug intolerance [None]
  - Extraocular muscle disorder [None]
  - Disease recurrence [None]
